FAERS Safety Report 23464174 (Version 2)
Quarter: 2024Q1

REPORT INFORMATION
  Report Type: Report from Study
  Country: US (occurrence: US)
  Receive Date: 20240201
  Receipt Date: 20240226
  Transmission Date: 20240410
  Serious: Yes (Other)
  Sender: FDA-Public Use
  Company Number: US-ABBVIE-5611122

PATIENT
  Age: 58 Year
  Sex: Male

DRUGS (1)
  1. SKYRIZI [Suspect]
     Active Substance: RISANKIZUMAB-RZAA
     Indication: Psoriasis
     Route: 058
     Dates: start: 20230707

REACTIONS (5)
  - Appendicectomy [Recovered/Resolved]
  - Myocardial infarction [Recovering/Resolving]
  - Myocardial infarction [Recovered/Resolved]
  - Sleep apnoea syndrome [Unknown]
  - Appendicectomy [Recovering/Resolving]

NARRATIVE: CASE EVENT DATE: 20231201
